FAERS Safety Report 4690146-5 (Version None)
Quarter: 2005Q2

REPORT INFORMATION
  Report Type: 
  Country: None (occurrence: None)
  Receive Date: 20050613
  Receipt Date: 20050606
  Transmission Date: 20051028
  Serious: Yes (Other)
  Sender: FDA-Public Use
  Company Number: 2005-06-0300

PATIENT
  Age: 35 Year
  Sex: Male
  Weight: 61 kg

DRUGS (2)
  1. INTRON A [Suspect]
     Indication: MULTIPLE MYELOMA
     Dosage: 6 MIU INTRAMUSCULAR
     Route: 030
     Dates: start: 20050603
  2. THALIDOMIDE [Concomitant]

REACTIONS (3)
  - FRACTURE [None]
  - URINARY RETENTION [None]
  - URINARY TRACT DISORDER [None]
